FAERS Safety Report 5228328-6 (Version None)
Quarter: 2007Q1

REPORT INFORMATION
  Report Type: 
  Country: None (occurrence: None)
  Receive Date: 20070131
  Receipt Date: 20070119
  Transmission Date: 20070707
  Serious: Yes (Other)
  Sender: FDA-Public Use
  Company Number: 07JP000859

PATIENT
  Age: 68 Year
  Sex: Female

DRUGS (3)
  1. PAROXETINE [Suspect]
     Indication: MAJOR DEPRESSION
     Dosage: 20 MG, QD,
     Dates: start: 20050201
  2. DIGOXIN [Concomitant]
  3. WARFARIN SODIUM [Concomitant]

REACTIONS (16)
  - ABASIA [None]
  - APHAGIA [None]
  - ATRIAL FIBRILLATION [None]
  - ATRIOVENTRICULAR BLOCK COMPLETE [None]
  - BEDRIDDEN [None]
  - BRADYCARDIA [None]
  - DELIRIUM [None]
  - DISORIENTATION [None]
  - DIZZINESS [None]
  - HALLUCINATION, VISUAL [None]
  - NAUSEA [None]
  - PNEUMONIA ASPIRATION [None]
  - REBOUND EFFECT [None]
  - THERAPEUTIC AGENT TOXICITY [None]
  - VENTRICULAR EXTRASYSTOLES [None]
  - VOMITING [None]
